FAERS Safety Report 16418852 (Version 1)
Quarter: 2019Q2

REPORT INFORMATION
  Report Type: Spontaneous
  Country: SE (occurrence: SE)
  Receive Date: 20190612
  Receipt Date: 20190612
  Transmission Date: 20190711
  Serious: Yes (Hospitalization)
  Sender: FDA-Public Use
  Company Number: SE-TEVA-2019-SE-1060853

PATIENT
  Age: 78 Year
  Sex: Female

DRUGS (13)
  1. PROLIA 60 MG INJEKTIONSVATSKA, LOSNING I FORFYLLD SPRUTA [Concomitant]
     Route: 058
     Dates: start: 20180320
  2. ATORVASTATIN [Concomitant]
     Active Substance: ATORVASTATIN
     Route: 048
     Dates: start: 20170128
  3. OVESTERIN 1 MG/G VAGINALKRAM [Concomitant]
     Route: 067
     Dates: start: 20170116
  4. BISOPROLOL [Suspect]
     Active Substance: BISOPROLOL
     Indication: ATRIAL FIBRILLATION
     Dates: end: 20190221
  5. BUFOMIX EASYHALER 160 MIKROGRAM/4,5 MIKROGRAM/INHALATION INHALATIONSPU [Concomitant]
     Route: 055
     Dates: start: 20190107
  6. MINIDERM 20 % KRAM [Concomitant]
     Dosage: 1 APPLICATION VIA
     Dates: start: 20181126
  7. ATARAX 10 MG FILMDRAGERAD TABLETT [Concomitant]
     Dosage: 1-2 TABLETS E.G. 1 TIME / DAY.
     Route: 048
     Dates: start: 20181126
  8. BRICANYL TURBUHALER 0,5 MG/DOS INHALATIONSPULVER [Concomitant]
     Dosage: 1 INHALATION IF REQUIRED 4 TIMES / DAY
     Dates: start: 20181208
  9. ACETYLCYSTEINE. [Concomitant]
     Active Substance: ACETYLCYSTEINE
     Dosage: 1 TABLET PER DAY, 2 TIMES / DAY / DAY.
     Dates: start: 20170511
  10. FURIX 40 MG TABLETT [Concomitant]
     Route: 048
     Dates: start: 20190109
  11. OMEPRAZOLE. [Concomitant]
     Active Substance: OMEPRAZOLE
     Route: 048
     Dates: start: 20171030
  12. ELIQUIS [Concomitant]
     Active Substance: APIXABAN
     Route: 048
     Dates: start: 20181222
  13. ALVEDON 500 MG FILMDRAGERAD TABLETT [Concomitant]
     Dosage: 1-2 TABLETS E.G.
     Dates: start: 20170818

REACTIONS (2)
  - Urticaria [Recovered/Resolved]
  - Dyspnoea [Recovered/Resolved]

NARRATIVE: CASE EVENT DATE: 2019
